FAERS Safety Report 14308415 (Version 1)
Quarter: 2017Q4

REPORT INFORMATION
  Report Type: Spontaneous
  Country: JP (occurrence: JP)
  Receive Date: 20171220
  Receipt Date: 20171220
  Transmission Date: 20180321
  Serious: Yes (Hospitalization)
  Sender: FDA-Public Use
  Company Number: PHJP2017JP036410

PATIENT
  Age: 96 Year
  Sex: Female

DRUGS (1)
  1. RIVASTIGMINE. [Suspect]
     Active Substance: RIVASTIGMINE
     Indication: DEMENTIA
     Dosage: 9.5 MG, UNK (PATCH 10 CM2, 18 MG)
     Route: 062

REACTIONS (3)
  - Cholinergic syndrome [Unknown]
  - Clonic convulsion [Recovered/Resolved]
  - Altered state of consciousness [Recovering/Resolving]
